FAERS Safety Report 4595083-2 (Version None)
Quarter: 2005Q1

REPORT INFORMATION
  Report Type: 
  Country: None (occurrence: None)
  Receive Date: 20050301
  Receipt Date: 20050224
  Transmission Date: 20050727
  Serious: Yes (Disabling)
  Sender: FDA-Public Use
  Company Number: US-MERCK-0502USA03308

PATIENT
  Age: 64 Year
  Sex: Male

DRUGS (4)
  1. SINGULAIR [Suspect]
     Indication: ASTHMA
     Route: 048
     Dates: start: 20050218, end: 20050222
  2. FLEXERIL [Suspect]
     Route: 048
     Dates: end: 20050219
  3. ALBUTEROL [Concomitant]
     Route: 055
  4. IPRATROPIUM BROMIDE [Concomitant]
     Route: 065

REACTIONS (4)
  - COMMUNICATION DISORDER [None]
  - DELIRIUM [None]
  - MENTAL STATUS CHANGES [None]
  - SOMNOLENCE [None]
